FAERS Safety Report 5674035-5 (Version None)
Quarter: 2008Q1

REPORT INFORMATION
  Report Type: 
  Country: None (occurrence: None)
  Receive Date: 20080320
  Receipt Date: 20080310
  Transmission Date: 20080703
  Serious: Yes (Other)
  Sender: FDA-Public Use
  Company Number: IT-TEVA-168779ISR

PATIENT
  Age: 30 Year
  Sex: Female

DRUGS (4)
  1. DOXORUBICIN HCL [Suspect]
  2. BLEOMYCIN SULFATE [Suspect]
  3. VINBLASTINE SULFATE [Suspect]
  4. DACARBAZINE [Suspect]

REACTIONS (1)
  - THYMUS ENLARGEMENT [None]
